FAERS Safety Report 21771305 (Version 1)
Quarter: 2022Q4

REPORT INFORMATION
  Report Type: Spontaneous
  Country: GB (occurrence: GB)
  Receive Date: 20221223
  Receipt Date: 20221223
  Transmission Date: 20230113
  Serious: Yes (Other)
  Sender: FDA-Public Use
  Company Number: None

PATIENT
  Age: 78 Year
  Sex: Female
  Weight: 68 kg

DRUGS (3)
  1. AMOXICILLIN\CLAVULANATE POTASSIUM [Suspect]
     Active Substance: AMOXICILLIN\CLAVULANATE POTASSIUM
     Indication: Product used for unknown indication
     Dosage: 1 DOSAGE FORM, TID (500MG/125MG)
     Route: 065
     Dates: start: 20221205
  2. CLOTRIMAZOLE [Concomitant]
     Active Substance: CLOTRIMAZOLE
     Indication: Product used for unknown indication
     Dosage: APPLY 2-3 TIMES/DAY INTO THE AFFECTED EAR
     Route: 001
     Dates: start: 20221028, end: 20221104
  3. OTOMIZE [Concomitant]
     Indication: Product used for unknown indication
     Dosage: (USE AS DIRECTED)
     Route: 065
     Dates: start: 20221013, end: 20221020

REACTIONS (2)
  - Illness [Unknown]
  - Diarrhoea [Unknown]
